FAERS Safety Report 8217464-8 (Version None)
Quarter: 2012Q1

REPORT INFORMATION
  Report Type: 
  Country: None (occurrence: None)
  Receive Date: 20120315
  Receipt Date: 20120303
  Transmission Date: 20120608
  Serious: Yes (Hospitalization)
  Sender: FDA-Public Use
  Company Number: UTC-016305

PATIENT
  Age: 40 Year
  Sex: Female
  Weight: 51.82 kg

DRUGS (2)
  1. ADCIRCA [Concomitant]
  2. REMODULIN [Suspect]
     Indication: PULMONARY HYPERTENSION
     Dosage: 18.72 UG/KG (0.013 UG/KG,1 IN 1 MIN),SUBCUTANEOUS
     Route: 058
     Dates: start: 20111122

REACTIONS (2)
  - DIARRHOEA [None]
  - DEHYDRATION [None]
